FAERS Safety Report 15775802 (Version 1)
Quarter: 2018Q4

REPORT INFORMATION
  Report Type: Spontaneous
  Country: CN (occurrence: CN)
  Receive Date: 20181231
  Receipt Date: 20181231
  Transmission Date: 20190205
  Serious: Yes (Other)
  Sender: FDA-Public Use
  Company Number: CN-ROCHE-2236047

PATIENT
  Age: 49 Year
  Sex: Female

DRUGS (12)
  1. 5-FLUOROURACIL [Concomitant]
     Active Substance: FLUOROURACIL
     Dosage: 0.625 BY BOLUS, 3.5 CONTINUOUS INFUSION FOR 46HOUR
     Route: 065
     Dates: start: 20171220
  2. 5-FLUOROURACIL [Concomitant]
     Active Substance: FLUOROURACIL
     Dosage: 0.625 BY BOLUS, 3.5 CONTINUOUS INFUSION FOR 46HOUR
     Route: 065
     Dates: start: 20180111
  3. XELODA [Suspect]
     Active Substance: CAPECITABINE
     Indication: ADENOCARCINOMA
     Dosage: FROM DAY1 TO DAY14
     Route: 065
     Dates: start: 20170107, end: 20170429
  4. REGORAFENIB. [Concomitant]
     Active Substance: REGORAFENIB
     Route: 065
  5. 5-FLUOROURACIL [Concomitant]
     Active Substance: FLUOROURACIL
     Dosage: 0.625 BY BOLUS, 3.5 CONTINUOUS INFUSION FOR 46HOUR
     Route: 065
     Dates: start: 20180131
  6. IRINOTECAN [Concomitant]
     Active Substance: IRINOTECAN
     Dosage: ON DAY 1?20/DEC/2017, 11/JAN/2018, 31/JAN/2018, 11/FEB/2018
     Route: 065
     Dates: start: 20171220
  7. 5-FLUOROURACIL [Concomitant]
     Active Substance: FLUOROURACIL
     Dosage: 0.625 BY BOLUS, 3.5 CONTINUOUS INFUSION FOR 46HOUR
     Route: 065
     Dates: start: 20180211
  8. 5-FLUOROURACIL [Concomitant]
     Active Substance: FLUOROURACIL
     Dosage: 0.625 BY BOLUS, 3.5 CONTINUOUS INFUSION FOR 46HOUR
     Route: 065
  9. OXALIPLATIN. [Concomitant]
     Active Substance: OXALIPLATIN
     Dosage: ON DAY 1
     Route: 065
     Dates: start: 20170107, end: 20170429
  10. CALCIUM FOLINATE [Concomitant]
     Active Substance: LEUCOVORIN CALCIUM
     Dosage: 11/JAN/2018, 31/JAN/2018, 11/FEB/2018
     Route: 065
     Dates: start: 20171220
  11. 5-FLUOROURACIL [Concomitant]
     Active Substance: FLUOROURACIL
     Dosage: 0.625 BY BOLUS, 3.5 CONTINUOUS INFUSION FOR 46HOUR?11/JAN/2018, 31/JAN/2018, 11/FEB/2018
     Route: 065
     Dates: start: 20171220
  12. AVASTIN [Suspect]
     Active Substance: BEVACIZUMAB
     Indication: ADENOCARCINOMA
     Dosage: ON DAY 1
     Route: 042

REACTIONS (3)
  - Renal cyst [Unknown]
  - Uterine leiomyoma [Unknown]
  - Cholelithiasis [Unknown]
